FAERS Safety Report 19581564 (Version 1)
Quarter: 2021Q3

REPORT INFORMATION
  Report Type: Spontaneous
  Country: US (occurrence: US)
  Receive Date: 20210720
  Receipt Date: 20210720
  Transmission Date: 20211014
  Serious: No
  Sender: FDA-Public Use
  Company Number: None

PATIENT
  Age: 51 Year
  Sex: Female
  Weight: 86.1 kg

DRUGS (4)
  1. REMDESIVIR. [Suspect]
     Active Substance: REMDESIVIR
     Indication: COVID-19
     Dosage: ?          OTHER FREQUENCY:ONCE;?
     Route: 041
  2. NIACIN SR 500 MG [Concomitant]
     Dates: start: 20210714, end: 20210714
  3. INSULIN LISPRO [Concomitant]
     Active Substance: INSULIN LISPRO
     Dates: start: 20210714, end: 20210714
  4. LANTUS [Concomitant]
     Active Substance: INSULIN GLARGINE
     Dates: start: 20210714, end: 20210714

REACTIONS (1)
  - Rash [None]

NARRATIVE: CASE EVENT DATE: 20210714
